FAERS Safety Report 5938662-X (Version None)
Quarter: 2008Q4

REPORT INFORMATION
  Report Type: 
  Country: None (occurrence: None)
  Receive Date: 20081103
  Receipt Date: 20081027
  Transmission Date: 20090506
  Serious: Yes (Death, Hospitalization, Other)
  Sender: FDA-Public Use
  Company Number: PHHO2008DE12523

PATIENT
  Sex: Male
  Weight: 84 kg

DRUGS (3)
  1. SIMULECT [Suspect]
     Indication: LIVER TRANSPLANT
     Dosage: 20 MG, DAILY
     Route: 042
     Dates: start: 20081015, end: 20081015
  2. NEORAL [Suspect]
     Indication: LIVER TRANSPLANT
     Dosage: UNK
  3. NO TREATMENT RECEIVED NOMED [Suspect]
     Indication: LIVER TRANSPLANT
     Dosage: UNK

REACTIONS (2)
  - MULTI-ORGAN FAILURE [None]
  - SEPSIS [None]
